FAERS Safety Report 24382834 (Version 3)
Quarter: 2024Q4

REPORT INFORMATION
  Report Type: Spontaneous
  Country: AT (occurrence: AT)
  Receive Date: 20241001
  Receipt Date: 20241025
  Transmission Date: 20250114
  Serious: Yes (Other)
  Sender: REGENERON
  Company Number: AT-BAYER-2024A138302

PATIENT
  Sex: Female

DRUGS (1)
  1. EYLEA [Suspect]
     Active Substance: AFLIBERCEPT
     Indication: Product used for unknown indication
     Dosage: 40 MG/ML

REACTIONS (2)
  - Intra-ocular injection complication [Recovered/Resolved]
  - Visual impairment [Recovered/Resolved]
